FAERS Safety Report 6214155-X (Version None)
Quarter: 2009Q2

REPORT INFORMATION
  Report Type: 
  Country: None (occurrence: None)
  Receive Date: 20090604
  Receipt Date: 20090601
  Transmission Date: 20091009
  Serious: Yes (Death, Hospitalization)
  Sender: FDA-Public Use
  Company Number: US-BRISTOL-MYERS SQUIBB COMPANY-14477483

PATIENT
  Age: 51 Year
  Sex: Female
  Weight: 73 kg

DRUGS (7)
  1. ERBITUX [Suspect]
     Indication: RECTAL CANCER
     Dosage: INITIATED AT 1DEC08,INTERRUPTED AT 12JAN09.DISCONT ON 19JAN09
     Dates: start: 20090105, end: 20090105
  2. FLUOROURACIL [Suspect]
     Indication: RECTAL CANCER
     Dosage: INITIATED AT 8DEC08,INTERRUPTED AT 12JAN09.DISCONT ON 19JAN09
     Dates: start: 20090112, end: 20090112
  3. RADIOTHERAPY [Suspect]
     Indication: RECTAL CANCER
  4. TETRACYCLINE [Concomitant]
     Indication: INFECTION
     Route: 048
     Dates: start: 20080112
  5. IRON [Concomitant]
     Indication: NUTRITIONAL SUPPORT
     Route: 048
     Dates: start: 20080812
  6. ASCORBIC ACID [Concomitant]
     Indication: NUTRITIONAL SUPPORT
     Route: 048
     Dates: start: 20080812
  7. PHENERGAN [Concomitant]
     Indication: NAUSEA
     Route: 048
     Dates: start: 20080912

REACTIONS (5)
  - CARDIAC ARREST [None]
  - DEHYDRATION [None]
  - INTESTINAL OBSTRUCTION [None]
  - RECTOSIGMOID CANCER [None]
  - SEPSIS [None]
